FAERS Safety Report 22049439 (Version 5)
Quarter: 2024Q1

REPORT INFORMATION
  Report Type: Spontaneous
  Country: CA (occurrence: CA)
  Receive Date: 20230301
  Receipt Date: 20240117
  Transmission Date: 20240410
  Serious: Yes (Hospitalization, Other)
  Sender: FDA-Public Use
  Company Number: CA-MLMSERVICE-20230217-4113334-1

PATIENT
  Age: 78 Year
  Sex: Female

DRUGS (3)
  1. METHOTREXATE SODIUM [Suspect]
     Active Substance: METHOTREXATE SODIUM
     Indication: Polyarthritis
     Dosage: 20 MG, WEEKLY
     Route: 048
  2. GOLIMUMAB [Suspect]
     Active Substance: GOLIMUMAB
     Indication: Polyarthritis
     Dosage: 100 MG, CYCLIC (EVERY 8 WEEKS)
     Route: 042
  3. PREDNISONE [Suspect]
     Active Substance: PREDNISONE
     Indication: Polyarthritis
     Dosage: 25 MG, 1X/DAY
     Route: 048

REACTIONS (5)
  - Tricuspid valve incompetence [Recovered/Resolved]
  - Pericarditis fungal [Recovered/Resolved]
  - Aspergillus infection [Recovered/Resolved]
  - Mitral valve incompetence [Recovered/Resolved]
  - Atrial fibrillation [Recovered/Resolved]
